FAERS Safety Report 9949816 (Version 1)
Quarter: 2014Q1

REPORT INFORMATION
  Report Type: Report from Study
  Country: US (occurrence: US)
  Receive Date: 20140304
  Receipt Date: 20140304
  Transmission Date: 20141002
  Serious: Yes (Other)
  Sender: FDA-Public Use
  Company Number: US-SA-2014SA025469

PATIENT
  Sex: 0

DRUGS (1)
  1. JEVTANA [Suspect]
     Route: 065

REACTIONS (2)
  - Hydronephrosis [Unknown]
  - Inflammation [Unknown]
